FAERS Safety Report 19941363 (Version 1)
Quarter: 2021Q4

REPORT INFORMATION
  Report Type: Spontaneous
  Country: US (occurrence: US)
  Receive Date: 20211011
  Receipt Date: 20211011
  Transmission Date: 20220303
  Serious: No
  Sender: FDA-Public Use
  Company Number: US-JAZZ-2021-US-009001

PATIENT
  Sex: Female

DRUGS (2)
  1. SUNOSI [Suspect]
     Active Substance: SOLRIAMFETOL
     Indication: Sleep apnoea syndrome
     Dosage: 75 MILLIGRAM, QD
  2. SUNOSI [Suspect]
     Active Substance: SOLRIAMFETOL
     Indication: Somnolence

REACTIONS (2)
  - Feeling abnormal [Unknown]
  - Feeling jittery [Unknown]
